FAERS Safety Report 10638088 (Version 1)
Quarter: 2014Q4

REPORT INFORMATION
  Report Type: Spontaneous
  Country: US (occurrence: US)
  Receive Date: 20141208
  Receipt Date: 20141208
  Transmission Date: 20150529
  Serious: Yes (Other)
  Sender: FDA-Public Use
  Company Number: US-PFIZER INC-2014334902

PATIENT
  Age: 70 Year
  Sex: Female
  Weight: 73 kg

DRUGS (9)
  1. SKELAXIN [Suspect]
     Active Substance: METAXALONE
     Indication: NEURALGIA
  2. SKELAXIN [Suspect]
     Active Substance: METAXALONE
     Indication: RHEUMATOID ARTHRITIS
  3. SKELAXIN [Suspect]
     Active Substance: METAXALONE
     Indication: MUSCLE SPASMS
  4. SKELAXIN [Suspect]
     Active Substance: METAXALONE
     Indication: SPINAL DEFORMITY
  5. XANAX [Suspect]
     Active Substance: ALPRAZOLAM
     Dosage: UNK
  6. SKELAXIN [Suspect]
     Active Substance: METAXALONE
     Indication: INTERVERTEBRAL DISC PROTRUSION
     Dosage: UNK
  7. SKELAXIN [Suspect]
     Active Substance: METAXALONE
     Indication: SCOLIOSIS
  8. XALATAN [Suspect]
     Active Substance: LATANOPROST
     Dosage: UNK
  9. SYSTANE (HYPROMELLOSE 2910 (4000 MPA.S)) [Concomitant]
     Active Substance: HYPROMELLOSE 2910 (4000 MPA.S)
     Dosage: UNK, 1X/DAY (FOR NIGHT TIME)

REACTIONS (2)
  - Renal impairment [Unknown]
  - Renal failure [Unknown]
